FAERS Safety Report 17558552 (Version 1)
Quarter: 2020Q1

REPORT INFORMATION
  Report Type: Spontaneous
  Country: PL (occurrence: PL)
  Receive Date: 20200318
  Receipt Date: 20200318
  Transmission Date: 20200409
  Serious: Yes (Hospitalization)
  Sender: FDA-Public Use
  Company Number: PL-GLAXOSMITHKLINE-PL2020045091

PATIENT
  Age: 2 Year
  Sex: Male

DRUGS (15)
  1. ATARAX [Suspect]
     Active Substance: HYDROXYZINE HYDROCHLORIDE
     Indication: SKIN LESION
     Dosage: UNKNOWN DOSE
     Route: 061
  2. CETIRIZINE [Suspect]
     Active Substance: CETIRIZINE HYDROCHLORIDE
     Indication: DERMATITIS CONTACT
  3. CETIRIZINE [Suspect]
     Active Substance: CETIRIZINE HYDROCHLORIDE
     Indication: OFF LABEL USE
  4. DAPSONE. [Suspect]
     Active Substance: DAPSONE
     Indication: LINEAR IGA DISEASE
  5. FLUTICASONE. [Suspect]
     Active Substance: FLUTICASONE
     Indication: SKIN LESION
     Dosage: UNKNOWN DOSE
     Route: 061
  6. CETIRIZINE [Suspect]
     Active Substance: CETIRIZINE HYDROCHLORIDE
     Indication: SKIN LESION
     Dosage: UNKNOWN DOSE
     Route: 065
     Dates: start: 201908
  7. COTRIMOXAZOLE [Suspect]
     Active Substance: SULFAMETHOXAZOLE\TRIMETHOPRIM
     Indication: LINEAR IGA DISEASE
  8. HYDROCORTISONE. [Suspect]
     Active Substance: HYDROCORTISONE
     Indication: SKIN LESION
     Dosage: UNKNOWN DOSE
     Route: 061
     Dates: start: 201908
  9. ATARAX [Suspect]
     Active Substance: HYDROXYZINE HYDROCHLORIDE
     Indication: OFF LABEL USE
  10. DAPSONE. [Suspect]
     Active Substance: DAPSONE
     Indication: SKIN LESION
     Dosage: UNKNOWN DOSE
     Route: 061
  11. DIMETINDENE [Suspect]
     Active Substance: DIMETHINDENE
     Indication: DERMATITIS CONTACT
     Dosage: UNK
     Route: 061
  12. PREDNISONE. [Concomitant]
     Active Substance: PREDNISONE
     Indication: SKIN LESION
     Dosage: UNKNOWN DOSE
     Route: 065
  13. PREDNISONE. [Concomitant]
     Active Substance: PREDNISONE
     Indication: LINEAR IGA DISEASE
  14. COTRIMOXAZOLE [Suspect]
     Active Substance: SULFAMETHOXAZOLE\TRIMETHOPRIM
     Indication: SKIN LESION
     Dosage: UNKNOWN DOSE
     Route: 065
  15. HYDROCORTISONE. [Suspect]
     Active Substance: HYDROCORTISONE
     Indication: DERMATITIS CONTACT

REACTIONS (3)
  - Condition aggravated [Not Recovered/Not Resolved]
  - Off label use [Unknown]
  - Drug ineffective for unapproved indication [Unknown]
